FAERS Safety Report 4385026-9 (Version None)
Quarter: 2004Q2

REPORT INFORMATION
  Report Type: 
  Country: None (occurrence: None)
  Receive Date: 20040625
  Receipt Date: 20000620
  Transmission Date: 20050107
  Serious: Yes (Hospitalization)
  Sender: FDA-Public Use
  Company Number: DK-GLAXOSMITHKLINE-B0083453A

PATIENT
  Age: 24 Year
  Sex: Female

DRUGS (2)
  1. MALARONE [Suspect]
     Route: 048
     Dates: start: 19990917, end: 19991008
  2. MELODEN [Concomitant]
     Route: 048

REACTIONS (1)
  - DERMATITIS [None]
